FAERS Safety Report 15414285 (Version 1)
Quarter: 2018Q3

REPORT INFORMATION
  Report Type: Spontaneous
  Country: US (occurrence: US)
  Receive Date: 20180921
  Receipt Date: 20180921
  Transmission Date: 20181010
  Serious: Yes (Other)
  Sender: FDA-Public Use
  Company Number: US-TEVA-2018-US-955233

PATIENT
  Sex: Male

DRUGS (3)
  1. OXALIPLATIN INJECTION 50MG/10 ML+100MG/20ML [Suspect]
     Active Substance: OXALIPLATIN
     Route: 065
     Dates: start: 201703
  2. FOLFOX [Suspect]
     Active Substance: FLUOROURACIL\LEUCOVORIN CALCIUM\OXALIPLATIN
     Dates: start: 201703
  3. 5?FLUOROURACIL [Suspect]
     Active Substance: FLUOROURACIL
     Dates: start: 201703

REACTIONS (5)
  - Neuropathy peripheral [Recovering/Resolving]
  - Drug ineffective [Unknown]
  - Platelet count decreased [Recovering/Resolving]
  - Small intestinal perforation [Unknown]
  - Oncologic complication [Unknown]
